FAERS Safety Report 14016787 (Version 1)
Quarter: 2017Q3

REPORT INFORMATION
  Report Type: Spontaneous
  Country: US (occurrence: US)
  Receive Date: 20170927
  Receipt Date: 20170927
  Transmission Date: 20171128
  Serious: No
  Sender: FDA-Public Use
  Company Number: US-BAYER-2017-184915

PATIENT
  Sex: Female

DRUGS (4)
  1. SENNA LEAF [Concomitant]
     Active Substance: SENNA LEAF
     Dosage: UNK
  2. MIRALAX [Suspect]
     Active Substance: POLYETHYLENE GLYCOL 3350
     Indication: LAXATIVE SUPPORTIVE CARE
     Dosage: 2 DF, QD
     Route: 065
  3. MIRALAX [Suspect]
     Active Substance: POLYETHYLENE GLYCOL 3350
     Indication: CONSTIPATION
  4. BENEFIBER [Concomitant]
     Active Substance: STARCH, WHEAT
     Dosage: UNK

REACTIONS (6)
  - Product use issue [Unknown]
  - Off label use [Unknown]
  - Diarrhoea [Unknown]
  - Inappropriate prescribing [Unknown]
  - Wrong technique in product usage process [None]
  - Product use in unapproved indication [Unknown]

NARRATIVE: CASE EVENT DATE: 20170921
